FAERS Safety Report 17091787 (Version 1)
Quarter: 2019Q4

REPORT INFORMATION
  Report Type: Report from Study
  Country: RU (occurrence: RU)
  Receive Date: 20191129
  Receipt Date: 20191129
  Transmission Date: 20200122
  Serious: Yes (Other)
  Sender: FDA-Public Use
  Company Number: RU-SA-2019SA328147

PATIENT
  Age: 4 Year
  Sex: Male

DRUGS (8)
  1. ALEMTUZUMAB [Suspect]
     Active Substance: ALEMTUZUMAB
     Indication: IMMUNOSUPPRESSANT DRUG THERAPY
     Dosage: 30 MG, ONE DOSE 12-29 DAYS (18.0?3.1) PRIOR TO THE TRANSPLANTATION30 MG, ONE DOSE 12-29 DAYS (18.0?3
  2. VALGANCICLOVIR. [Concomitant]
     Active Substance: VALGANCICLOVIR
     Indication: ANTIVIRAL PROPHYLAXIS
     Dosage: UNK
  3. PREDNISONE. [Suspect]
     Active Substance: PREDNISONE
     Indication: IMMUNOSUPPRESSANT DRUG THERAPY
     Dosage: 60 MG/M2, BEGINNING ON POSTOPERATIVE DAY 1; MAXIMAL DOSE 80 MG
  4. MYCOPHENOLATE MOFETIL. [Suspect]
     Active Substance: MYCOPHENOLATE MOFETIL
     Indication: IMMUNOSUPPRESSANT DRUG THERAPY
     Dosage: 600 MG/M2, QD
  5. TACROLIMUS. [Suspect]
     Active Substance: TACROLIMUS
     Indication: IMMUNOSUPPRESSANT DRUG THERAPY
  6. ALEMTUZUMAB [Suspect]
     Active Substance: ALEMTUZUMAB
     Dosage: UNK, ONE DOSE AT THE TIME OF TRANSPLANTATION
  7. TRIMETHOPRIM SULFAMETHOXAZOLE [Concomitant]
     Active Substance: SULFAMETHOXAZOLE\TRIMETHOPRIM
     Indication: ANTIFUNGAL PROPHYLAXIS
     Dosage: UNK UNK, QD
  8. METHYLPREDNISOLONE. [Suspect]
     Active Substance: METHYLPREDNISOLONE
     Indication: IMMUNOSUPPRESSANT DRUG THERAPY
     Dosage: 10 MG/KG INTRAVENOUSLY PRIOR TO REPERFUSION
     Route: 042

REACTIONS (4)
  - Influenza like illness [Recovered/Resolved]
  - Off label use [Unknown]
  - Neutropenia [Recovered/Resolved]
  - Epstein-Barr virus infection [Recovered/Resolved]
